FAERS Safety Report 12507074 (Version 1)
Quarter: 2016Q2

REPORT INFORMATION
  Report Type: Spontaneous
  Country: US (occurrence: US)
  Receive Date: 20160629
  Receipt Date: 20160629
  Transmission Date: 20160815
  Serious: No
  Sender: FDA-Public Use
  Company Number: US-SUN PHARMACEUTICAL INDUSTRIES LTD-2016US-112479

PATIENT
  Age: 51 Year
  Sex: Male

DRUGS (1)
  1. DOXYCYCLINE. [Suspect]
     Active Substance: DOXYCYCLINE
     Indication: SINUSITIS
     Dosage: 100 MG, BID
     Route: 065
     Dates: start: 20160130

REACTIONS (6)
  - Dermatitis [Unknown]
  - Skin exfoliation [Unknown]
  - Balanoposthitis [Recovering/Resolving]
  - Pain [Unknown]
  - Dysuria [Unknown]
  - Pruritus [Unknown]

NARRATIVE: CASE EVENT DATE: 2016
